FAERS Safety Report 7562499-1 (Version None)
Quarter: 2011Q2

REPORT INFORMATION
  Report Type: 
  Country: None (occurrence: None)
  Receive Date: 20110622
  Receipt Date: 20110608
  Transmission Date: 20111010
  Serious: Yes (Hospitalization)
  Sender: FDA-Public Use
  Company Number: NL-MYLANLABS-2011S1011889

PATIENT
  Age: 51 Year
  Sex: Female

DRUGS (6)
  1. PERSANTIN [Suspect]
     Indication: OVERDOSE
     Dosage: 60 EXTENDED-RELEASE CAPSULES (200MG)
     Route: 048
  2. PERSANTIN [Suspect]
     Indication: SUICIDE ATTEMPT
     Dosage: 60 EXTENDED-RELEASE CAPSULES (200MG)
     Route: 048
  3. TEMAZEPAM [Suspect]
     Indication: SUICIDE ATTEMPT
     Dosage: 50 TABLETS (20MG)
     Route: 048
  4. OXAZEPAM [Suspect]
     Indication: SUICIDE ATTEMPT
     Dosage: 20 TABLETS (10MG)
     Route: 048
  5. OXAZEPAM [Suspect]
     Indication: OVERDOSE
     Dosage: 20 TABLETS (10MG)
     Route: 048
  6. TEMAZEPAM [Suspect]
     Indication: OVERDOSE
     Dosage: 50 TABLETS (20MG)
     Route: 048

REACTIONS (10)
  - SOMNOLENCE [None]
  - CHEST PAIN [None]
  - HYPOTENSION [None]
  - VOMITING [None]
  - PLATELET DISORDER [None]
  - SUICIDE ATTEMPT [None]
  - HEADACHE [None]
  - LOSS OF CONSCIOUSNESS [None]
  - INTENTIONAL OVERDOSE [None]
  - ATRIOVENTRICULAR BLOCK FIRST DEGREE [None]
